FAERS Safety Report 24264841 (Version 1)
Quarter: 2024Q3

REPORT INFORMATION
  Report Type: Spontaneous
  Country: JP (occurrence: JP)
  Receive Date: 20240829
  Receipt Date: 20240829
  Transmission Date: 20241017
  Serious: Yes (Death, Life-Threatening, Hospitalization, Other)
  Sender: PFIZER
  Company Number: JP-PFIZER INC-PV202400110468

PATIENT
  Age: 49 Year
  Sex: Male

DRUGS (8)
  1. METHYLPREDNISOLONE SODIUM SUCCINATE [Suspect]
     Active Substance: METHYLPREDNISOLONE SODIUM SUCCINATE
     Indication: Idiopathic interstitial pneumonia
     Dosage: 1 G, HIGH DOSE
     Dates: start: 2002
  2. PREDNISOLONE [Suspect]
     Active Substance: PREDNISOLONE
     Indication: Idiopathic interstitial pneumonia
     Dosage: 60 MG
     Route: 048
     Dates: start: 2002
  3. CYCLOSPORINE [Concomitant]
     Active Substance: CYCLOSPORINE
     Dosage: 100 MG
     Route: 048
     Dates: start: 2002
  4. CYCLOPHOSPHAMIDE [Concomitant]
     Active Substance: CYCLOPHOSPHAMIDE
     Dosage: 500 MG
     Route: 042
     Dates: start: 2002
  5. AMPHOTERICIN B [Concomitant]
     Active Substance: AMPHOTERICIN B
     Dosage: 50 MG
     Dates: start: 2002
  6. GANCICLOVIR [Concomitant]
     Active Substance: GANCICLOVIR
     Dosage: 600 MG
     Dates: start: 2002
  7. MEROPENEM [Concomitant]
     Active Substance: MEROPENEM
     Dosage: 1 G
     Dates: start: 2002
  8. CIPROFLOXACIN [Concomitant]
     Active Substance: CIPROFLOXACIN
     Dosage: 600 MG
     Dates: start: 2002

REACTIONS (2)
  - Drug resistance [Fatal]
  - Off label use [Unknown]

NARRATIVE: CASE EVENT DATE: 20020101
